FAERS Safety Report 6969531-4 (Version None)
Quarter: 2010Q3

REPORT INFORMATION
  Report Type: 
  Country: None (occurrence: None)
  Receive Date: 20100907
  Receipt Date: 20100907
  Transmission Date: 20110219
  Serious: Yes (Disabling, Other)
  Sender: FDA-Public Use
  Company Number: None

PATIENT
  Sex: Female
  Weight: 122.4712 kg

DRUGS (1)
  1. METRONIDAZOLE [Suspect]
     Indication: BACTERIAL INFECTION
     Dosage: 2 A DAY PO
     Route: 048
     Dates: start: 20100903, end: 20100903

REACTIONS (2)
  - FORMICATION [None]
  - PRURITUS [None]
